FAERS Safety Report 5325371-3 (Version None)
Quarter: 2007Q2

REPORT INFORMATION
  Report Type: 
  Country: None (occurrence: None)
  Receive Date: 20070509
  Receipt Date: 20070423
  Transmission Date: 20071010
  Serious: Yes (Other)
  Sender: FDA-Public Use
  Company Number: 2007RR-07187

PATIENT
  Age: 55 Year
  Sex: Female
  Weight: 90 kg

DRUGS (1)
  1. CEPHALEXIN [Suspect]
     Indication: COUGH
     Dosage: 500 MG, ORAL
     Route: 048
     Dates: start: 20070315, end: 20070330

REACTIONS (1)
  - HEPATITIS [None]
